FAERS Safety Report 18102389 (Version 1)
Quarter: 2020Q3

REPORT INFORMATION
  Report Type: Spontaneous
  Country: US (occurrence: US)
  Receive Date: 20200803
  Receipt Date: 20200803
  Transmission Date: 20201103
  Serious: Yes (Hospitalization)
  Sender: FDA-Public Use
  Company Number: US-STRIDES ARCOLAB LIMITED-2020SP006984

PATIENT
  Age: 47 Year
  Sex: Male

DRUGS (3)
  1. TACROLIMUS. [Suspect]
     Active Substance: TACROLIMUS
     Indication: RENAL TRANSPLANT
     Dosage: UNK
     Route: 065
  2. MYCOPHENOLATE MOFETIL. [Suspect]
     Active Substance: MYCOPHENOLATE MOFETIL
     Indication: RENAL TRANSPLANT
     Dosage: UNK
     Route: 065
  3. PREDNISOLONE. [Suspect]
     Active Substance: PREDNISOLONE
     Indication: RENAL TRANSPLANT
     Dosage: UNK
     Route: 065

REACTIONS (18)
  - Cytomegalovirus infection [Recovered/Resolved]
  - Inflammation [Unknown]
  - Skin erosion [Unknown]
  - Ulcer [Unknown]
  - Diarrhoea [Unknown]
  - Haematochezia [Unknown]
  - Anaemia [Unknown]
  - Fatigue [Unknown]
  - Gastrointestinal wall thickening [Unknown]
  - Abdominal pain [Unknown]
  - Weight decreased [Unknown]
  - Malaise [Unknown]
  - Erythema [Unknown]
  - Decreased appetite [Unknown]
  - Rectal haemorrhage [Unknown]
  - Cytomegalovirus colitis [Unknown]
  - Colitis [Unknown]
  - Angiopathy [Unknown]
